FAERS Safety Report 7545668-6 (Version None)
Quarter: 2011Q2

REPORT INFORMATION
  Report Type: 
  Country: None (occurrence: None)
  Receive Date: 20110524
  Receipt Date: 20110211
  Transmission Date: 20111010
  Serious: No
  Sender: FDA-Public Use
  Company Number: 027432

PATIENT
  Sex: Female

DRUGS (3)
  1. PHENERGAN /00033001/ [Concomitant]
  2. CIMZIA [Suspect]
     Indication: CROHN'S DISEASE
     Dosage: (400 MG 1X/2 WEEKS SUBCUTANEOUS)
     Route: 058
     Dates: start: 20110128
  3. NORCO [Concomitant]

REACTIONS (4)
  - INJECTION SITE HAEMORRHAGE [None]
  - DRUG EXPOSURE DURING PREGNANCY [None]
  - INJECTION SITE PAIN [None]
  - INJECTION SITE REACTION [None]
